FAERS Safety Report 17367965 (Version 1)
Quarter: 2020Q1

REPORT INFORMATION
  Report Type: Spontaneous
  Country: US (occurrence: US)
  Receive Date: 20200118
  Receipt Date: 20200118
  Transmission Date: 20200409
  Serious: Yes (Hospitalization)
  Sender: FDA-Public Use
  Company Number: None

PATIENT
  Age: 70 Year
  Sex: Male
  Weight: 66.5 kg

DRUGS (2)
  1. 5-FLUOROURACIL (5-FU) [Suspect]
     Active Substance: FLUOROURACIL
     Dates: end: 20191202
  2. CISPLATIN. [Suspect]
     Active Substance: CISPLATIN
     Dates: end: 20191202

REACTIONS (3)
  - Pyrexia [None]
  - Cough [None]
  - Pneumonia [None]

NARRATIVE: CASE EVENT DATE: 20191217
